FAERS Safety Report 8028328-7 (Version None)
Quarter: 2012Q1

REPORT INFORMATION
  Report Type: 
  Country: None (occurrence: None)
  Receive Date: 20120106
  Receipt Date: 20111230
  Transmission Date: 20120608
  Serious: Yes (Hospitalization)
  Sender: FDA-Public Use
  Company Number: PHHY2011ES113475

PATIENT
  Age: 71 Year
  Sex: Male

DRUGS (6)
  1. NAPROXEN [Suspect]
     Indication: PAIN
     Dosage: 1000 MG, QD (500MG TWICE A DAY)
     Dates: start: 20110908, end: 20110912
  2. NOLOTIL [Concomitant]
     Indication: PAIN
     Dosage: 1150 MG, QD
     Route: 048
     Dates: start: 20110908, end: 20110912
  3. SINTROM [Interacting]
     Indication: ATRIAL FIBRILLATION
     Route: 048
     Dates: start: 20110101, end: 20110912
  4. OMEPRAZOLE [Concomitant]
     Indication: PROPHYLAXIS
     Dosage: 40 MG, QD
     Route: 048
     Dates: start: 20090101
  5. ASPIRIN [Interacting]
     Indication: PROPHYLAXIS
     Dosage: 100 MG, QD
     Route: 048
     Dates: start: 20010101
  6. ENOXAPARIN SODIUM [Interacting]
     Indication: ATRIAL FIBRILLATION
     Dosage: 100 MG, QD
     Route: 058
     Dates: start: 20110908

REACTIONS (5)
  - DRUG INTERACTION [None]
  - HAEMOGLOBIN DECREASED [None]
  - PUNCTURE SITE HAEMORRHAGE [None]
  - GASTROINTESTINAL HAEMORRHAGE [None]
  - MUSCLE HAEMORRHAGE [None]
